FAERS Safety Report 14393005 (Version 2)
Quarter: 2018Q1

REPORT INFORMATION
  Report Type: Spontaneous
  Country: US (occurrence: US)
  Receive Date: 20180116
  Receipt Date: 20180302
  Transmission Date: 20180509
  Serious: No
  Sender: FDA-Public Use
  Company Number: US-NOVOPROD-572194

PATIENT
  Age: 52 Year
  Sex: Male

DRUGS (3)
  1. TRESIBA [Suspect]
     Active Substance: INSULIN DEGLUDEC
     Indication: TYPE 2 DIABETES MELLITUS
     Dosage: 50 U, QD
     Route: 058
     Dates: start: 201708
  2. VICTOZA [Suspect]
     Active Substance: LIRAGLUTIDE
     Indication: TYPE 2 DIABETES MELLITUS
     Dosage: UNK
     Route: 058
     Dates: start: 201709, end: 201709
  3. VICTOZA [Suspect]
     Active Substance: LIRAGLUTIDE
     Indication: WEIGHT INCREASED
     Dosage: 1.8 MG, QD
     Route: 058
     Dates: start: 201709

REACTIONS (1)
  - Neuralgia [Not Recovered/Not Resolved]

NARRATIVE: CASE EVENT DATE: 201710
